FAERS Safety Report 5158789-2 (Version None)
Quarter: 2006Q4

REPORT INFORMATION
  Report Type: 
  Country: None (occurrence: None)
  Receive Date: 20061116
  Receipt Date: 20061026
  Transmission Date: 20070319
  Serious: Yes (Other)
  Sender: FDA-Public Use
  Company Number: JP200608006134

PATIENT
  Age: 66 Year
  Sex: Male
  Weight: 79.7 kg

DRUGS (6)
  1. LISPRO           (LISPRO 50LIS50NPL) [Suspect]
     Indication: DIABETES MELLITUS NON-INSULIN-DEPENDENT
     Dosage: 12 U, EACH MORNING,; 6 U EACH EVENING,
     Dates: start: 20051102, end: 20060304
  2. LISPRO           (LISPRO 50LIS50NPL) [Suspect]
     Indication: DIABETES MELLITUS NON-INSULIN-DEPENDENT
     Dosage: 12 U, EACH MORNING,; 6 U EACH EVENING,
     Dates: start: 20051102, end: 20060304
  3. HUMALOG 50NPL/50L PEN                    (HUMALOG 50NPL/50L PEN) [Concomitant]
  4. METFORMIN HYDROCHLORIDE [Concomitant]
  5. BASEN                 (VOGLIBOSE) [Concomitant]
  6. ASPIRIN [Concomitant]

REACTIONS (1)
  - CEREBRAL INFARCTION [None]
